FAERS Safety Report 4801077-1 (Version None)
Quarter: 2005Q4

REPORT INFORMATION
  Report Type: 
  Country: None (occurrence: None)
  Receive Date: 20051012
  Receipt Date: 20050929
  Transmission Date: 20060501
  Serious: Yes (Life-Threatening, Hospitalization)
  Sender: FDA-Public Use
  Company Number: 2005123283

PATIENT
  Age: 38 Year
  Sex: Female
  Weight: 50 kg

DRUGS (2)
  1. AZULFIDINE EN-TABS [Suspect]
     Indication: RHEUMATOID ARTHRITIS
     Dosage: 1000 MG (2 IN 1 D), ORAL
     Route: 048
     Dates: start: 20041204, end: 20050829
  2. SELBEX (TEPRENONE) [Concomitant]

REACTIONS (4)
  - CHOLANGITIS [None]
  - HYPERSENSITIVITY [None]
  - JAUNDICE CHOLESTATIC [None]
  - PORTAL VEIN STENOSIS [None]
